FAERS Safety Report 4975388-3 (Version None)
Quarter: 2006Q2

REPORT INFORMATION
  Report Type: 
  Country: None (occurrence: None)
  Receive Date: 20060418
  Receipt Date: 20060313
  Transmission Date: 20061013
  Serious: Yes (Hospitalization, Disabling)
  Sender: FDA-Public Use
  Company Number: US-MERCK-0603USA02230

PATIENT
  Age: 54 Year
  Sex: Female
  Weight: 105 kg

DRUGS (3)
  1. VIOXX [Suspect]
     Indication: ARTHRITIS
     Route: 048
     Dates: start: 20000101, end: 20011001
  2. SUDAFED 12 HOUR [Concomitant]
     Route: 065
  3. TYLENOL (CAPLET) [Concomitant]
     Route: 065

REACTIONS (17)
  - ANGIOPATHY [None]
  - ARTHROPATHY [None]
  - CARDIAC FAILURE CONGESTIVE [None]
  - CARTILAGE INJURY [None]
  - CEREBROVASCULAR ACCIDENT [None]
  - CERVICOBRACHIAL SYNDROME [None]
  - DEPRESSION [None]
  - DIABETES MELLITUS NON-INSULIN-DEPENDENT [None]
  - DYSPNOEA [None]
  - HAEMATOMA [None]
  - HYPOKALAEMIA [None]
  - MUSCULOSKELETAL CHEST PAIN [None]
  - NON-CARDIAC CHEST PAIN [None]
  - OCCULT BLOOD POSITIVE [None]
  - OSTEOARTHRITIS [None]
  - PNEUMONIA [None]
  - TRANSIENT ISCHAEMIC ATTACK [None]
